FAERS Safety Report 7883959-X (Version None)
Quarter: 2011Q4

REPORT INFORMATION
  Report Type: 
  Country: None (occurrence: None)
  Receive Date: 20111102
  Receipt Date: 20111020
  Transmission Date: 20120403
  Serious: Yes (Death)
  Sender: FDA-Public Use
  Company Number: US-OPTIMER-20110042

PATIENT
  Age: 75 Year
  Sex: Male

DRUGS (3)
  1. DIFICID [Suspect]
     Indication: CLOSTRIDIAL INFECTION
     Dosage: 200 MG, BID
     Route: 065
     Dates: start: 20111002, end: 20111003
  2. FLAGYL [Suspect]
     Indication: ANTIBIOTIC THERAPY
     Dosage: 500 MG, UNK
     Route: 050
     Dates: start: 20110901, end: 20111003
  3. VANCOMYCIN HCL [Suspect]
     Indication: ANTIBIOTIC THERAPY
     Dosage: 500 MG, QID
     Route: 050
     Dates: start: 20110901, end: 20111003

REACTIONS (1)
  - DEATH [None]
